FAERS Safety Report 4556193-9 (Version None)
Quarter: 2005Q1

REPORT INFORMATION
  Report Type: 
  Country: None (occurrence: None)
  Receive Date: 20050103
  Receipt Date: 20040902
  Transmission Date: 20050727
  Serious: Yes (Hospitalization)
  Sender: FDA-Public Use
  Company Number: 2004UW18749

PATIENT
  Age: 74 Year
  Sex: Male

DRUGS (3)
  1. CRESTOR [Suspect]
  2. VIOXX [Concomitant]
  3. NORVASC [Concomitant]

REACTIONS (4)
  - ABDOMINAL PAIN [None]
  - MUSCLE SPASMS [None]
  - RENAL FAILURE [None]
  - RHABDOMYOLYSIS [None]
